FAERS Safety Report 20757704 (Version 1)
Quarter: 2022Q2

REPORT INFORMATION
  Report Type: Spontaneous
  Country: US (occurrence: None)
  Receive Date: 20220427
  Receipt Date: 20220427
  Transmission Date: 20220721
  Serious: Yes (Hospitalization, Disabling)
  Sender: FDA-Public Use
  Company Number: None

PATIENT
  Age: 51 Year
  Sex: Male
  Weight: 69.75 kg

DRUGS (7)
  1. ACCUPRIL [Suspect]
     Active Substance: QUINAPRIL HYDROCHLORIDE
     Indication: Hypertension
     Route: 048
     Dates: start: 20220310, end: 20220425
  2. ACCUPRIL [Concomitant]
     Active Substance: QUINAPRIL HYDROCHLORIDE
  3. ASPIRIN [Concomitant]
     Active Substance: ASPIRIN
  4. NORVASC [Concomitant]
     Active Substance: AMLODIPINE BESYLATE
  5. LIPITOR [Concomitant]
     Active Substance: ATORVASTATIN CALCIUM
  6. LOPRESSOR [Concomitant]
     Active Substance: METOPROLOL TARTRATE
  7. AMPICILLIN [Concomitant]
     Active Substance: AMPICILLIN

REACTIONS (5)
  - Recalled product administered [None]
  - Cerebrovascular accident [None]
  - Lacunar infarction [None]
  - Thalamic infarction [None]
  - Blood pressure fluctuation [None]

NARRATIVE: CASE EVENT DATE: 20220425
